FAERS Safety Report 9562274 (Version 1)
Quarter: 2013Q3

REPORT INFORMATION
  Report Type: Spontaneous
  Country: US (occurrence: US)
  Receive Date: 20130927
  Receipt Date: 20130927
  Transmission Date: 20140515
  Serious: No
  Sender: FDA-Public Use
  Company Number: US-GLAXOSMITHKLINE-A1038639A

PATIENT
  Age: 55 Year
  Sex: Female

DRUGS (1)
  1. TAFINLAR [Suspect]
     Indication: PRODUCT USED FOR UNKNOWN INDICATION
     Dosage: 75MG TWICE PER DAY
     Route: 065
     Dates: start: 20130723

REACTIONS (1)
  - Drug administration error [Unknown]
